FAERS Safety Report 5906635-9 (Version None)
Quarter: 2008Q4

REPORT INFORMATION
  Report Type: 
  Country: None (occurrence: None)
  Receive Date: 20081002
  Receipt Date: 20080918
  Transmission Date: 20090506
  Serious: Yes (Other)
  Sender: FDA-Public Use
  Company Number: DE-ELI_LILLY_AND_COMPANY-DE200809000154

PATIENT
  Sex: Female

DRUGS (3)
  1. EVISTA [Suspect]
     Indication: DESMOID TUMOUR
     Dosage: 60 MG, DAILY (1/D)
     Route: 048
     Dates: start: 20080101, end: 20080501
  2. TAMOXIFEN CITRATE [Concomitant]
     Indication: DESMOID TUMOUR
     Dosage: UNK, UNKNOWN
     Route: 065
     Dates: end: 20071201
  3. SULINDAC [Concomitant]
     Indication: DESMOID TUMOUR
     Dosage: UNK, UNKNOWN
     Route: 065
     Dates: start: 20080101, end: 20080501

REACTIONS (1)
  - HEPATITIS [None]
